FAERS Safety Report 9310673 (Version 1)
Quarter: 2013Q2

REPORT INFORMATION
  Report Type: Spontaneous
  Country: JP (occurrence: JP)
  Receive Date: 20130527
  Receipt Date: 20130527
  Transmission Date: 20140414
  Serious: Yes (Other)
  Sender: FDA-Public Use
  Company Number: JP-009507513-1305JPN010888

PATIENT
  Age: 68 Year
  Sex: Male

DRUGS (3)
  1. PEGINTRON [Suspect]
     Dosage: 1.5 MICROGRAM PER KILOGRAM
     Route: 058
     Dates: start: 20130426, end: 20130426
  2. REBETOL [Suspect]
     Dosage: 600 MG, QD
     Route: 048
     Dates: start: 20130426, end: 20130428
  3. TELAVIC [Suspect]
     Indication: HEPATITIS C
     Dosage: 1500 MG, QD
     Route: 048
     Dates: start: 20130426, end: 20130428

REACTIONS (1)
  - Rash [Recovered/Resolved]
